FAERS Safety Report 18799553 (Version 1)
Quarter: 2021Q1

REPORT INFORMATION
  Report Type: Spontaneous
  Country: US (occurrence: US)
  Receive Date: 20210128
  Receipt Date: 20210128
  Transmission Date: 20210419
  Serious: Yes (Hospitalization)
  Sender: FDA-Public Use
  Company Number: None

PATIENT
  Age: 76 Year
  Sex: Female
  Weight: 90 kg

DRUGS (1)
  1. RECLAST [Suspect]
     Active Substance: ZOLEDRONIC ACID
     Indication: OSTEOPOROSIS
     Dosage: ?          OTHER FREQUENCY:ONCE;?
     Route: 040
     Dates: start: 20200822, end: 20200822

REACTIONS (7)
  - Asthenia [None]
  - Pain [None]
  - Blood magnesium decreased [None]
  - Headache [None]
  - Gait disturbance [None]
  - Fatigue [None]
  - Blood potassium decreased [None]

NARRATIVE: CASE EVENT DATE: 20200822
